FAERS Safety Report 8006475-3 (Version None)
Quarter: 2011Q4

REPORT INFORMATION
  Report Type: 
  Country: None (occurrence: None)
  Receive Date: 20111226
  Receipt Date: 20111214
  Transmission Date: 20120403
  Serious: Yes (Other)
  Sender: FDA-Public Use
  Company Number: PHHY2011TW109682

PATIENT
  Age: 80 Year
  Sex: Female

DRUGS (8)
  1. SITAGLIPTIN PHOSPHATE [Concomitant]
     Dosage: 100 MG, PILL IN MORNING, PER DAY
     Route: 048
  2. REPAGLINIDE [Concomitant]
     Dosage: 1 MG, 9ONE PILL, THREE TIMES PER DAY)
     Route: 048
  3. SENNOSIDE [Concomitant]
     Dosage: 2 DF, (12 MG, 02 PILLS BEFORE SLEEP PER DAY)
     Route: 048
  4. SITAGLIPTIN PHOSPHATE [Concomitant]
     Dosage: 0.5 MG, PILL IN MORNING,PER DAY
     Route: 048
  5. SILYMARIN [Concomitant]
     Dosage: 1 DF, BID, 150 MG, FOR 07 DAYS
  6. DIOVAN HCT [Suspect]
     Dosage: 1 DF, BID (ONE PILL PER NIGHT PER DAY)
     Route: 048
     Dates: start: 20110614
  7. ALENDRONATE SODIUM [Concomitant]
     Dosage: 70 MG, ONE PILL PER WEEK
     Route: 048
  8. CALCIUM CITRATE [Concomitant]
     Dosage: 950 MG, ONE PILL PER DAY
     Route: 048

REACTIONS (6)
  - ASPARTATE AMINOTRANSFERASE INCREASED [None]
  - LOW DENSITY LIPOPROTEIN INCREASED [None]
  - ALANINE AMINOTRANSFERASE INCREASED [None]
  - HYPOTENSION [None]
  - BLOOD CREATINE PHOSPHOKINASE INCREASED [None]
  - HYPONATRAEMIA [None]
